FAERS Safety Report 6819706-X (Version None)
Quarter: 2010Q3

REPORT INFORMATION
  Report Type: 
  Country: None (occurrence: None)
  Receive Date: 20100707
  Receipt Date: 20100608
  Transmission Date: 20110219
  Serious: Yes (Hospitalization)
  Sender: FDA-Public Use
  Company Number: FR-BIOGENIDEC-2010BI014717

PATIENT
  Age: 46 Year
  Sex: Female
  Weight: 50 kg

DRUGS (4)
  1. TYSABRI [Suspect]
     Indication: MULTIPLE SCLEROSIS
     Route: 042
     Dates: start: 20100107, end: 20100402
  2. CYMBALTA [Concomitant]
     Indication: PAIN
  3. MANTADIX [Concomitant]
     Indication: FATIGUE
     Dates: start: 20070822
  4. CERIS [Concomitant]
     Indication: DYSURIA
     Dates: start: 20090108

REACTIONS (2)
  - DERMATITIS ALLERGIC [None]
  - IDIOPATHIC THROMBOCYTOPENIC PURPURA [None]
